FAERS Safety Report 26063805 (Version 3)
Quarter: 2025Q4

REPORT INFORMATION
  Report Type: Spontaneous
  Country: US (occurrence: US)
  Receive Date: 20251119
  Receipt Date: 20251127
  Transmission Date: 20260119
  Serious: Yes (Hospitalization)
  Sender: MDD OPERATIONS
  Company Number: US-MDD US Operations-MDD202511-004564

PATIENT
  Age: 63 Year
  Sex: Female

DRUGS (8)
  1. ONAPGO [Suspect]
     Active Substance: APOMORPHINE HYDROCHLORIDE
     Indication: Parkinson^s disease
     Dosage: 1MG PER HOUR
     Dates: start: 20251021
  2. ONAPGO [Suspect]
     Active Substance: APOMORPHINE HYDROCHLORIDE
     Dosage: DOSE: 1.5MG PER HOUR, CONTINUOUS INFUSION FOR 9-10 HOURS A DAY.
     Dates: start: 20251030, end: 20251103
  3. REPATHA [Concomitant]
     Active Substance: EVOLOCUMAB
     Dosage: NOT PROVIDED
  4. INSULIN NOS [Concomitant]
     Active Substance: INSULIN NOS
     Dosage: NOT PROVIDED
  5. HUMALOG [Concomitant]
     Active Substance: INSULIN LISPRO
     Dosage: NOT PROVIDED
  6. ZOLOFT [Concomitant]
     Active Substance: SERTRALINE HYDROCHLORIDE
     Dosage: NOT PROVIDED
  7. OMEPRAZOLE [Concomitant]
     Active Substance: OMEPRAZOLE
     Dosage: NOT PROVIDED
  8. GABAPENTIN [Concomitant]
     Active Substance: GABAPENTIN
     Dosage: NOT PROVIDED

REACTIONS (8)
  - Dehydration [Recovered/Resolved]
  - Condition aggravated [Recovered/Resolved]
  - Ketoacidosis [Recovered/Resolved]
  - Nausea [Recovered/Resolved]
  - Vomiting [Recovered/Resolved]
  - Headache [Unknown]
  - Dizziness [Unknown]
  - Expired product administered [Unknown]
